FAERS Safety Report 16192167 (Version 1)
Quarter: 2019Q2

REPORT INFORMATION
  Report Type: Spontaneous
  Country: US (occurrence: US)
  Receive Date: 20190412
  Receipt Date: 20190412
  Transmission Date: 20190711
  Serious: Yes (Hospitalization, Other)
  Sender: FDA-Public Use
  Company Number: US-ASTRAZENECA-2019SE53893

PATIENT
  Age: 65 Year
  Sex: Female

DRUGS (11)
  1. SYNTHROID [Concomitant]
     Active Substance: LEVOTHYROXINE SODIUM
     Route: 048
  2. ACYCLOVIR. [Concomitant]
     Active Substance: ACYCLOVIR
     Route: 048
  3. CHOLECALCIFEROL [Concomitant]
     Active Substance: CHOLECALCIFEROL
  4. IBRANCE [Suspect]
     Active Substance: PALBOCICLIB
     Indication: BREAST CANCER METASTATIC
     Route: 030
     Dates: start: 20181120, end: 20181210
  5. TAMOXIFEN [Suspect]
     Active Substance: TAMOXIFEN
     Route: 048
  6. CYMBALTA [Concomitant]
     Active Substance: DULOXETINE HYDROCHLORIDE
     Route: 048
  7. FISH OIL [Concomitant]
     Active Substance: FISH OIL
  8. HYDRODIURIL [Concomitant]
     Active Substance: HYDROCHLOROTHIAZIDE
     Route: 048
  9. PRILOSEC [Suspect]
     Active Substance: OMEPRAZOLE MAGNESIUM
     Dosage: 20 MG BEFORE BREAKFAST
     Route: 048
  10. FEMARA [Concomitant]
     Active Substance: LETROZOLE
  11. CALCIUM [Concomitant]
     Active Substance: CALCIUM
     Route: 048

REACTIONS (16)
  - Diastolic dysfunction [Unknown]
  - Pyrexia [Unknown]
  - Chest pain [Unknown]
  - Lip ulceration [Unknown]
  - Blindness [Unknown]
  - Dyslipidaemia [Unknown]
  - Retinal vein thrombosis [Unknown]
  - Type V hyperlipidaemia [Unknown]
  - Dyspnoea [Unknown]
  - Hypothyroidism [Unknown]
  - Neutropenia [Recovered/Resolved]
  - Hypertension [Unknown]
  - Depression [Unknown]
  - Non-small cell lung cancer [Unknown]
  - Headache [Unknown]
  - Rash [Unknown]

NARRATIVE: CASE EVENT DATE: 20181210
